FAERS Safety Report 12701864 (Version 1)
Quarter: 2016Q3

REPORT INFORMATION
  Report Type: Spontaneous
  Country: US (occurrence: US)
  Receive Date: 20160831
  Receipt Date: 20160831
  Transmission Date: 20161109
  Serious: No
  Sender: FDA-Public Use
  Company Number: US-JAZZ-2016-US-007677

PATIENT
  Age: 53 Year
  Sex: Female

DRUGS (14)
  1. COENZYME Q10 [Concomitant]
     Active Substance: UBIDECARENONE
  2. EFFEXOR [Concomitant]
     Active Substance: VENLAFAXINE HYDROCHLORIDE
  3. LORATADINE. [Concomitant]
     Active Substance: LORATADINE
  4. GLUCOSAMINE AND CHONDROITIN [Concomitant]
     Active Substance: CHONDROITIN SULFATE (BOVINE)\GLUCOSAMINE HYDROCHLORIDE
  5. RITALIN [Concomitant]
     Active Substance: METHYLPHENIDATE HYDROCHLORIDE
  6. XYREM [Suspect]
     Active Substance: SODIUM OXYBATE
     Indication: CATAPLEXY
  7. FLONASE [Concomitant]
     Active Substance: FLUTICASONE PROPIONATE
  8. OMEGA-3 ACIDS [Concomitant]
     Active Substance: OMEGA-3 FATTY ACIDS
  9. XYREM [Suspect]
     Active Substance: SODIUM OXYBATE
     Indication: NARCOLEPSY
     Dosage: 2.25 G, BID
     Route: 048
     Dates: start: 20160420
  10. NUVIGIL [Concomitant]
     Active Substance: ARMODAFINIL
  11. VITAMIN D [Concomitant]
     Active Substance: CHOLECALCIFEROL
  12. EFFEXOR [Concomitant]
     Active Substance: VENLAFAXINE HYDROCHLORIDE
  13. LASIX [Concomitant]
     Active Substance: FUROSEMIDE
  14. VYVANSE [Concomitant]
     Active Substance: LISDEXAMFETAMINE DIMESYLATE

REACTIONS (1)
  - Loss of dreaming [Unknown]

NARRATIVE: CASE EVENT DATE: 20160420
